FAERS Safety Report 5066604-0 (Version None)
Quarter: 2006Q3

REPORT INFORMATION
  Report Type: 
  Country: None (occurrence: None)
  Receive Date: 20060728
  Receipt Date: 20060717
  Transmission Date: 20061208
  Serious: Yes (Other)
  Sender: FDA-Public Use
  Company Number: 2006088251

PATIENT
  Sex: Female

DRUGS (2)
  1. ZITHROMAX [Suspect]
     Indication: PNEUMONIA
     Dosage: 500 MG (500 MG, 1 IN 1 D)
     Dates: start: 20050301
  2. PRILOSC (OMEPRAZOLE) [Concomitant]

REACTIONS (13)
  - BODY TEMPERATURE DECREASED [None]
  - C-REACTIVE PROTEIN INCREASED [None]
  - COLD SWEAT [None]
  - CONFUSIONAL STATE [None]
  - GINGIVAL BLEEDING [None]
  - HEADACHE [None]
  - MUSCLE CONTRACTURE [None]
  - MUSCLE DISORDER [None]
  - PAIN IN EXTREMITY [None]
  - TINNITUS [None]
  - TREMOR [None]
  - VARICOSE VEIN [None]
  - VEIN DISORDER [None]
